FAERS Safety Report 11051526 (Version 2)
Quarter: 2015Q2

REPORT INFORMATION
  Report Type: Report from Study
  Country: AU (occurrence: AU)
  Receive Date: 20150421
  Receipt Date: 20150528
  Transmission Date: 20150821
  Serious: Yes (Hospitalization, Other)
  Sender: FDA-Public Use
  Company Number: AU-SA-2015SA049051

PATIENT
  Age: 76 Year
  Sex: Female

DRUGS (2)
  1. LANTUS [Suspect]
     Active Substance: INSULIN GLARGINE
     Dosage: DOSE: 109 UNITS (58 UNITS AM AND 51 UNITS NOCTE)
     Route: 065
     Dates: start: 20050415
  2. APIDRA [Concomitant]
     Active Substance: INSULIN GLULISINE
     Dosage: DOSE: 6 UNITS AT LUNCH AND 10 UNITS NOCTE

REACTIONS (5)
  - Breast lump removal [Unknown]
  - Radiotherapy [Unknown]
  - Arterial repair [Unknown]
  - Drug administration error [Unknown]
  - Cerebrovascular accident [Recovered/Resolved]

NARRATIVE: CASE EVENT DATE: 20050415
